FAERS Safety Report 24223990 (Version 2)
Quarter: 2024Q3

REPORT INFORMATION
  Report Type: Spontaneous
  Country: GR (occurrence: GR)
  Receive Date: 20240819
  Receipt Date: 20240907
  Transmission Date: 20241017
  Serious: Yes (Hospitalization, Other)
  Sender: BAXTER
  Company Number: None

PATIENT
  Age: 39 Year
  Sex: Female

DRUGS (5)
  1. CYCLOPHOSPHAMIDE [Suspect]
     Active Substance: CYCLOPHOSPHAMIDE
     Indication: Breast cancer
     Dosage: SUPPLEMENTARY CHEMOTHERAPY WITH 4 CYCLES OF FEC
     Route: 065
  2. FLUOROURACIL [Suspect]
     Active Substance: FLUOROURACIL
     Indication: Breast cancer
     Dosage: SUPPLEMENTARY CHEMOTHERAPY WITH 4 CYCLES OF FEC
     Route: 065
  3. EPIRUBICIN [Suspect]
     Active Substance: EPIRUBICIN
     Indication: Breast cancer
     Dosage: SUPPLEMENTARY CHEMOTHERAPY WITH 4 CYCLES OF FEC
     Route: 065
  4. TAXOTERE [Suspect]
     Active Substance: DOCETAXEL
     Indication: Breast cancer
     Dosage: SUPPLEMENTARY CHEMOTHERAPY WITH 4 CYCLES FOR ONE YEAR
     Route: 065
  5. BEVACIZUMAB [Suspect]
     Active Substance: BEVACIZUMAB
     Indication: Breast cancer
     Dosage: SUPPLEMENTARY CHEMOTHERAPY WITH 4 CYCLES FOR ONE YEAR
     Route: 065

REACTIONS (3)
  - Hepatic steatosis [Unknown]
  - Ascites [Unknown]
  - Abdominal pain upper [Unknown]
